FAERS Safety Report 8387502-0 (Version None)
Quarter: 2012Q2

REPORT INFORMATION
  Report Type: 
  Country: None (occurrence: None)
  Receive Date: 20120525
  Receipt Date: 20120518
  Transmission Date: 20120825
  Serious: Yes (Hospitalization)
  Sender: FDA-Public Use
  Company Number: PHHY2012DE037737

PATIENT

DRUGS (12)
  1. BISOPROLOL FUMARATE [Concomitant]
     Indication: HYPERTENSION
     Dosage: 10 MG, PER DAY
     Route: 048
  2. TASIGNA [Suspect]
     Indication: CHRONIC MYELOID LEUKAEMIA
     Dosage: 600 MG, PER DAY
     Route: 048
     Dates: start: 20111215
  3. RAMIPRIL [Concomitant]
  4. DOXACOR [Concomitant]
  5. ACETYLSALICYLIC ACID SRT [Concomitant]
  6. ENOXAPARIN SODIUM [Concomitant]
  7. PLAVIX [Concomitant]
  8. TORSEMIDE [Concomitant]
  9. PANTOPRAZOLE [Concomitant]
  10. SIMVASTATIN [Concomitant]
  11. RAMIPRIL [Concomitant]
     Indication: HYPERTENSION
     Dosage: 5 MG, PER DAY
     Route: 048
  12. ASS ^CT-ARZNEIMITTEL^ [Concomitant]
     Indication: CORONARY ARTERY DISEASE
     Dosage: 100 MG/ DAY
     Route: 048

REACTIONS (4)
  - MYOCARDIAL INFARCTION [None]
  - ANGINA PECTORIS [None]
  - CEREBRAL INFARCTION [None]
  - TACHYARRHYTHMIA [None]
